FAERS Safety Report 10164647 (Version 1)
Quarter: 2014Q2

REPORT INFORMATION
  Report Type: Spontaneous
  Country: US (occurrence: US)
  Receive Date: 20140510
  Receipt Date: 20140510
  Transmission Date: 20141212
  Serious: No
  Sender: FDA-Public Use
  Company Number: US-BRISTOL-MYERS SQUIBB COMPANY-20142576

PATIENT
  Age: 62 Year
  Sex: Female
  Weight: 123.35 kg

DRUGS (5)
  1. BYDUREON [Suspect]
     Indication: TYPE 2 DIABETES MELLITUS
     Dates: start: 201210
  2. METFORMIN HCL [Suspect]
  3. GLIMEPIRIDE [Suspect]
  4. NOVOLOG [Suspect]
     Dosage: NOVOLOG-8-12 UNITS/MEAL
  5. LEVEMIR [Suspect]
     Dosage: 50UNITS

REACTIONS (2)
  - Weight decreased [Unknown]
  - Blood glucose fluctuation [Unknown]
